FAERS Safety Report 4939548-X (Version None)
Quarter: 2006Q1

REPORT INFORMATION
  Report Type: 
  Country: None (occurrence: None)
  Receive Date: 20060310
  Receipt Date: 20060306
  Transmission Date: 20060701
  Serious: Yes (Hospitalization)
  Sender: FDA-Public Use
  Company Number: FR-AVENTIS-200611404EU

PATIENT
  Age: 57 Year
  Sex: Female
  Weight: 65 kg

DRUGS (5)
  1. NATRILIX [Suspect]
     Indication: HYPERTENSION
     Route: 048
     Dates: start: 20060123, end: 20060128
  2. VALCOTE [Concomitant]
  3. RIVOTRIL [Concomitant]
  4. MIRTAZAPINE [Concomitant]
  5. SINOGAN [Concomitant]

REACTIONS (2)
  - CONVULSION [None]
  - HYPONATRAEMIA [None]
